FAERS Safety Report 25481584 (Version 1)
Quarter: 2025Q2

REPORT INFORMATION
  Report Type: Spontaneous
  Country: US (occurrence: US)
  Receive Date: 20250626
  Receipt Date: 20250626
  Transmission Date: 20250717
  Serious: No
  Sender: ROCHE
  Company Number: US-ROCHE-10000315487

PATIENT

DRUGS (1)
  1. XOLAIR [Suspect]
     Active Substance: OMALIZUMAB
     Indication: Food allergy
     Dosage: 300 MG/2ML
     Route: 058
     Dates: start: 20250512

REACTIONS (4)
  - Product dose omission issue [Unknown]
  - Device issue [Unknown]
  - No adverse event [Unknown]
  - Device malfunction [Unknown]

NARRATIVE: CASE EVENT DATE: 20250612
